FAERS Safety Report 25885788 (Version 1)
Quarter: 2025Q4

REPORT INFORMATION
  Report Type: Spontaneous
  Country: EU (occurrence: EU)
  Receive Date: 20251006
  Receipt Date: 20251006
  Transmission Date: 20260117
  Serious: Yes (Other)
  Sender: BAUSCH AND LOMB
  Company Number: None

PATIENT
  Age: 74 Year
  Sex: Female

DRUGS (3)
  1. HYDROCORTISONE [Interacting]
     Active Substance: HYDROCORTISONE
     Indication: Bronchospasm
     Route: 042
     Dates: start: 20250520, end: 20250520
  2. HYDROCORTISONE [Interacting]
     Active Substance: HYDROCORTISONE
     Dosage: DOSE RE-INTRODUCED
     Route: 042
  3. METHYLPREDNISOLONE [Interacting]
     Active Substance: METHYLPREDNISOLONE
     Indication: Bronchospasm
     Route: 042
     Dates: start: 20250520, end: 20250525

REACTIONS (2)
  - Hyperglycaemia [Recovered/Resolved]
  - Concomitant disease aggravated [Recovered/Resolved]

NARRATIVE: CASE EVENT DATE: 20250520
